FAERS Safety Report 14262104 (Version 2)
Quarter: 2017Q4

REPORT INFORMATION
  Report Type: Spontaneous
  Country: US (occurrence: US)
  Receive Date: 20171208
  Receipt Date: 20171208
  Transmission Date: 20180321
  Serious: Yes (Other)
  Sender: FDA-Public Use
  Company Number: US-NOVOPROD-519234

PATIENT
  Age: 71 Year
  Sex: Male
  Weight: 68.27 kg

DRUGS (8)
  1. NOVOLIN N [Suspect]
     Active Substance: INSULIN HUMAN
     Indication: TYPE 1 DIABETES MELLITUS
     Dosage: SLIDING SCALE
     Route: 058
     Dates: start: 1994, end: 20161022
  2. LOVASTATIN. [Concomitant]
     Active Substance: LOVASTATIN
     Indication: PRODUCT USED FOR UNKNOWN INDICATION
     Dosage: 40 MG, QD
  3. NOVOLIN N [Suspect]
     Active Substance: INSULIN HUMAN
     Dosage: SLIDING SCALE
     Route: 058
     Dates: start: 20161023, end: 20161113
  4. NOVOLIN R [Suspect]
     Active Substance: INSULIN HUMAN
     Dosage: SLIDING SCALE
     Route: 058
     Dates: start: 20161024, end: 20161111
  5. LISINOPRIL. [Concomitant]
     Active Substance: LISINOPRIL
     Indication: PRODUCT USED FOR UNKNOWN INDICATION
     Dosage: 5 MG, QD
  6. NOVOLIN R [Suspect]
     Active Substance: INSULIN HUMAN
     Dosage: SLIDING SCALE
     Dates: start: 20161112
  7. NOVOLIN R [Suspect]
     Active Substance: INSULIN HUMAN
     Indication: TYPE 1 DIABETES MELLITUS
     Dosage: SLIDING SCALE
     Route: 058
     Dates: start: 1994, end: 20161023
  8. NOVOLIN N [Suspect]
     Active Substance: INSULIN HUMAN
     Dosage: SLIDING SCALE
     Dates: start: 20161114

REACTIONS (5)
  - Blood glucose fluctuation [Unknown]
  - Hypoglycaemic unconsciousness [Recovered/Resolved]
  - Incorrect dose administered [Recovered/Resolved]
  - Drug effect decreased [Recovered/Resolved]
  - Product storage error [Recovered/Resolved]

NARRATIVE: CASE EVENT DATE: 2016
